FAERS Safety Report 10046925 (Version 1)
Quarter: 2014Q1

REPORT INFORMATION
  Report Type: Spontaneous
  Country: CA (occurrence: None)
  Receive Date: 20140327
  Receipt Date: 20140327
  Transmission Date: 20141002
  Serious: Yes (Other)
  Sender: FDA-Public Use
  Company Number: 2014-CA-003494

PATIENT
  Age: 32 Year
  Sex: Male

DRUGS (3)
  1. XYREM (SODIUM OXYBATE) ORAL SOLUTION, 500 MG/ML [Suspect]
     Indication: CATAPLEXY
     Route: 048
     Dates: start: 20131211
  2. NEXIUM [Concomitant]
  3. REACTINE [Concomitant]

REACTIONS (5)
  - Syncope [None]
  - Dysstasia [None]
  - Dyspnoea [None]
  - Incorrect dose administered [None]
  - Fall [None]
